FAERS Safety Report 9508893 (Version 1)
Quarter: 2013Q3

REPORT INFORMATION
  Report Type: Spontaneous
  Country: US (occurrence: US)
  Receive Date: 20130909
  Receipt Date: 20130909
  Transmission Date: 20140515
  Serious: No
  Sender: FDA-Public Use
  Company Number: US-BRISTOL-MYERS SQUIBB COMPANY-19052323

PATIENT
  Sex: Male

DRUGS (2)
  1. ABILIFY INJECTION [Suspect]
     Indication: PSYCHOTIC DISORDER
     Dosage: ABILIFY MAINTENA
  2. ABILIFY TABS 15 MG [Suspect]
     Indication: PSYCHOTIC DISORDER
     Dosage: ABILIFY MAINTENA INJECTION THREE DAYS PRIOR
     Dates: start: 20130626

REACTIONS (1)
  - Dyskinesia [Recovering/Resolving]
